FAERS Safety Report 8035804-X (Version None)
Quarter: 2012Q1

REPORT INFORMATION
  Report Type: 
  Country: None (occurrence: None)
  Receive Date: 20120111
  Receipt Date: 20120102
  Transmission Date: 20120608
  Serious: Yes (Death)
  Sender: FDA-Public Use
  Company Number: US-BAYER-2012-001562

PATIENT
  Age: 50 Year
  Sex: Female

DRUGS (8)
  1. IBUPROFEN [Suspect]
     Indication: COMPLETED SUICIDE
  2. OXYCODONE HCL [Suspect]
     Indication: COMPLETED SUICIDE
  3. MORPHINE [Suspect]
     Indication: COMPLETED SUICIDE
  4. NAPROXEN SODIUM [Suspect]
  5. ESZOPICLONE [Suspect]
     Indication: COMPLETED SUICIDE
  6. ACETAMINOPHEN [Suspect]
  7. ALPRAZOLAM [Suspect]
     Indication: COMPLETED SUICIDE
  8. FLUOXETINE [Suspect]
     Indication: COMPLETED SUICIDE

REACTIONS (2)
  - COMPLETED SUICIDE [None]
  - TOXICITY TO VARIOUS AGENTS [None]
